FAERS Safety Report 24186139 (Version 1)
Quarter: 2024Q3

REPORT INFORMATION
  Report Type: Spontaneous
  Country: MA (occurrence: MA)
  Receive Date: 20240808
  Receipt Date: 20240808
  Transmission Date: 20241016
  Serious: Yes (Other)
  Sender: STRIDES
  Company Number: MA-STRIDES ARCOLAB LIMITED-2024SP009860

PATIENT
  Age: 45 Year
  Sex: Female

DRUGS (3)
  1. CABERGOLINE [Suspect]
     Active Substance: CABERGOLINE
     Indication: Prolactin-producing pituitary tumour
     Dosage: 0.5 MILLIGRAM, 2 TIMES A WEEK
     Route: 065
  2. CABERGOLINE [Suspect]
     Active Substance: CABERGOLINE
     Dosage: 0.5 MILLIGRAM PER WEEK (DOSE DECREASED)
     Route: 065
  3. METFORMIN [Concomitant]
     Active Substance: METFORMIN HYDROCHLORIDE
     Indication: Type 2 diabetes mellitus
     Dosage: UNK (FOR }3 YEARS)
     Route: 065

REACTIONS (3)
  - Pituitary apoplexy [Recovered/Resolved]
  - Pituitary tumour [Recovered/Resolved]
  - Neuroendocrine tumour [Recovered/Resolved]
